FAERS Safety Report 22264146 (Version 2)
Quarter: 2023Q4

REPORT INFORMATION
  Report Type: Spontaneous
  Country: CN (occurrence: CN)
  Receive Date: 20230428
  Receipt Date: 20231006
  Transmission Date: 20240110
  Serious: Yes (Life-Threatening)
  Sender: FDA-Public Use
  Company Number: CN-BAYER-2023A059184

PATIENT
  Age: 50 Year
  Sex: Male

DRUGS (3)
  1. ULTRAVIST [Suspect]
     Active Substance: IOPROMIDE
     Indication: Angiogram
     Dosage: 50 ML, ONCE
     Route: 042
     Dates: start: 20230425, end: 20230425
  2. ULTRAVIST [Suspect]
     Active Substance: IOPROMIDE
     Indication: Lung neoplasm malignant
  3. ULTRAVIST [Suspect]
     Active Substance: IOPROMIDE
     Indication: Bronchial carcinoma

REACTIONS (3)
  - Dyspnoea [Recovering/Resolving]
  - Face oedema [Recovering/Resolving]
  - Urticaria [Recovering/Resolving]

NARRATIVE: CASE EVENT DATE: 20230425
